FAERS Safety Report 16409294 (Version 3)
Quarter: 2020Q1

REPORT INFORMATION
  Report Type: Spontaneous
  Country: US (occurrence: US)
  Receive Date: 20190610
  Receipt Date: 20200122
  Transmission Date: 20200409
  Serious: Yes (Other)
  Sender: FDA-Public Use
  Company Number: US-PFIZER INC-2019246911

PATIENT
  Age: 46 Year
  Sex: Male

DRUGS (8)
  1. PROTONIX [Suspect]
     Active Substance: PANTOPRAZOLE SODIUM
     Indication: GASTROOESOPHAGEAL REFLUX DISEASE
     Dosage: 40 MG, 1X/DAY
     Dates: start: 20100104, end: 20140729
  2. UREA. [Concomitant]
     Active Substance: UREA
     Indication: DRY SKIN
     Dosage: UNK, AS NEEDED
     Route: 061
     Dates: start: 20130516
  3. BENZOYL [Concomitant]
     Indication: SKIN IRRITATION
     Dosage: UNK, AS NEEDED
     Route: 061
     Dates: start: 20130516
  4. MICONAZOLE. [Concomitant]
     Active Substance: MICONAZOLE
     Indication: ANTIFUNGAL TREATMENT
     Dosage: UNK, AS NEEDED
     Route: 061
     Dates: start: 20130516
  5. PEPTO-BISMOL [Concomitant]
     Active Substance: BISMUTH SUBSALICYLATE
     Indication: ANTACID THERAPY
     Dosage: UNK, AS NEEDED
  6. SODIUM CHLORIDE. [Concomitant]
     Active Substance: SODIUM CHLORIDE
     Indication: NASAL CONGESTION
     Dosage: UNK, AS NEEDED
     Route: 045
     Dates: start: 20130516
  7. FLUTICASONE. [Concomitant]
     Active Substance: FLUTICASONE
     Indication: PAIN MANAGEMENT
     Dosage: UNK, AS NEEDED
     Dates: start: 20130516
  8. OMEPRAZOLE. [Suspect]
     Active Substance: OMEPRAZOLE
     Indication: GASTROOESOPHAGEAL REFLUX DISEASE
     Dosage: 40 MG, 1X/DAY
     Dates: start: 20130521

REACTIONS (3)
  - Anxiety [Unknown]
  - Chronic kidney disease [Not Recovered/Not Resolved]
  - Depression [Unknown]

NARRATIVE: CASE EVENT DATE: 2012
